FAERS Safety Report 21374225 (Version 2)
Quarter: 2022Q4

REPORT INFORMATION
  Report Type: Report from Study
  Country: US (occurrence: US)
  Receive Date: 20220926
  Receipt Date: 20221023
  Transmission Date: 20230112
  Serious: Yes (Other)
  Sender: FDA-Public Use
  Company Number: US-BRISTOL-MYERS SQUIBB COMPANY-2022-101361

PATIENT
  Age: 54 Year
  Sex: Female
  Weight: 117.9 kg

DRUGS (1)
  1. REVLIMID [Suspect]
     Active Substance: LENALIDOMIDE
     Indication: Plasma cell myeloma
     Dosage: FREQUENCY: 2 WEEKS ON, 1 WEEK OFF?ONGOING?EXPIRY DATE-31 AUG 2024
     Route: 048
     Dates: start: 20220810

REACTIONS (7)
  - Chills [Unknown]
  - Arthropathy [Unknown]
  - Blood pressure decreased [Unknown]
  - Fatigue [Unknown]
  - Sinusitis [Unknown]
  - Off label use [Unknown]
  - Feeling cold [Unknown]

NARRATIVE: CASE EVENT DATE: 20220101
